FAERS Safety Report 4888269-0 (Version None)
Quarter: 2006Q1

REPORT INFORMATION
  Report Type: 
  Country: None (occurrence: None)
  Receive Date: 20060119
  Receipt Date: 20051229
  Transmission Date: 20060701
  Serious: Yes (Hospitalization)
  Sender: FDA-Public Use
  Company Number: DSA_27600_2005

PATIENT
  Age: 32 Year
  Sex: Female
  Weight: 112.0385 kg

DRUGS (2)
  1. NIFEDICAL [Suspect]
     Indication: HYPERTENSION
     Dosage: DF
     Dates: start: 20040101, end: 20050601
  2. HYDROCHLOROTHIAZIDE [Concomitant]

REACTIONS (1)
  - HYPERTENSION [None]
